FAERS Safety Report 11833786 (Version 1)
Quarter: 2015Q4

REPORT INFORMATION
  Report Type: Report from Study
  Country: PA (occurrence: PA)
  Receive Date: 20151214
  Receipt Date: 20151214
  Transmission Date: 20160305
  Serious: Yes (Other)
  Sender: FDA-Public Use
  Company Number: PHHY2015PA090104

PATIENT
  Age: 7 Year
  Sex: Male

DRUGS (4)
  1. EXJADE [Suspect]
     Active Substance: DEFERASIROX
     Dosage: 2 DF, (ONLY ON MONDAYS, TUESDAYS AND FRIDAYS)
     Route: 065
  2. EXJADE [Suspect]
     Active Substance: DEFERASIROX
     Dosage: 1 DF, QD
     Route: 065
  3. EXJADE [Suspect]
     Active Substance: DEFERASIROX
     Indication: PRODUCT USED FOR UNKNOWN INDICATION
     Dosage: 1 DF, BID (ONE IN THE MORNIGN AND ONE IN THE AFTERNOON)
     Route: 065
  4. EXJADE [Suspect]
     Active Substance: DEFERASIROX
     Dosage: 750 MG, UNK
     Route: 065

REACTIONS (5)
  - Incorrect dose administered [Unknown]
  - Headache [Unknown]
  - Acute chest syndrome [Unknown]
  - Disease recurrence [Unknown]
  - Serum ferritin increased [Unknown]
